FAERS Safety Report 21771339 (Version 6)
Quarter: 2025Q3

REPORT INFORMATION
  Report Type: Report from Study
  Country: JP (occurrence: JP)
  Receive Date: 20221223
  Receipt Date: 20250707
  Transmission Date: 20251021
  Serious: Yes (Other)
  Sender: ROCHE
  Company Number: JP-ROCHE-3249450

PATIENT

DRUGS (1)
  1. RITUXIMAB [Suspect]
     Active Substance: RITUXIMAB
     Indication: Anti-neutrophil cytoplasmic antibody positive vasculitis
     Route: 042

REACTIONS (3)
  - Escherichia bacteraemia [Unknown]
  - Pyelonephritis acute [Unknown]
  - Pancreatitis necrotising [Unknown]
